FAERS Safety Report 11176750 (Version 5)
Quarter: 2018Q1

REPORT INFORMATION
  Report Type: Report from Study
  Country: IT (occurrence: IT)
  Receive Date: 20150610
  Receipt Date: 20180227
  Transmission Date: 20180508
  Serious: Yes (Hospitalization, Other)
  Sender: FDA-Public Use
  Company Number: IT-ACCORD-031210

PATIENT
  Age: 78 Year
  Sex: Male
  Weight: 65 kg

DRUGS (9)
  1. ZALTRAP [Suspect]
     Active Substance: ZIV-AFLIBERCEPT
     Indication: RECTAL CANCER
     Dosage: PT. ALSO TOOK ZALTRAP ON 23-MAR, 20-APR, AND 04-MAY-2015.
     Route: 042
     Dates: start: 20150305
  2. LIDOCAINE. [Concomitant]
     Active Substance: LIDOCAINE
     Dates: start: 20150513, end: 20150515
  3. FLUOROURACIL. [Suspect]
     Active Substance: FLUOROURACIL
     Indication: RECTAL CANCER
     Dosage: PT. ALSO TOOK FLUOROURACIL ON 23-MAR, 20-APR, AND 670 MG ON 04-MAY-2015.
     Route: 042
     Dates: start: 20150305
  4. LEDERFOLIN [Suspect]
     Active Substance: LEUCOVORIN CALCIUM
     Indication: RECTAL CANCER
     Dosage: PT. ALSO TOOK LEDERFOLIN ON 23-MAR, 20-APR, AND 04-MAY-2015.
     Route: 042
     Dates: start: 20150305
  5. ARVENUM [Concomitant]
     Active Substance: DIOSMIN
     Dates: start: 20150513, end: 20150515
  6. LEUCOVORIN. [Suspect]
     Active Substance: LEUCOVORIN
     Indication: COLORECTAL CANCER METASTATIC
     Route: 041
     Dates: start: 20150504, end: 20150504
  7. IRINOTECAN [Suspect]
     Active Substance: IRINOTECAN
     Indication: RECTAL CANCER
     Dosage: PT. ALSO TOOK IRINOTECAN ON 23-MAR, 20-APR, AND 04-MAY-2015.
     Route: 042
     Dates: start: 20150305
  8. AFLIBERCEPT [Suspect]
     Active Substance: AFLIBERCEPT
     Indication: COLORECTAL CANCER METASTATIC
     Route: 041
     Dates: start: 20150305, end: 20150305
  9. FLUOCORTOLONE [Concomitant]
     Active Substance: FLUOCORTOLONE

REACTIONS (6)
  - Neutropenia [Recovered/Resolved]
  - Haemorrhoidal haemorrhage [Recovered/Resolved]
  - Embolism arterial [Unknown]
  - Diarrhoea [Recovered/Resolved]
  - Bone pain [Recovered/Resolved]
  - Aortic thrombosis [Recovered/Resolved]

NARRATIVE: CASE EVENT DATE: 20150323
